FAERS Safety Report 8129881-5 (Version None)
Quarter: 2012Q1

REPORT INFORMATION
  Report Type: 
  Country: None (occurrence: None)
  Receive Date: 20120210
  Receipt Date: 20111207
  Transmission Date: 20120608
  Serious: No
  Sender: FDA-Public Use
  Company Number: US-COVIDIEN/TYCO HEALTHCARE/MALLINCKRODT-T201102738

PATIENT
  Sex: Female

DRUGS (2)
  1. PENNSAID [Suspect]
     Indication: PAIN
     Dosage: 2 GTT, PRN
     Route: 061
     Dates: start: 20110201
  2. SYNTHROID [Concomitant]
     Indication: HYPOTHYROIDISM
     Dosage: UNK, QD
     Route: 048

REACTIONS (3)
  - DRUG DIVERSION [None]
  - APPLICATION SITE PAIN [None]
  - EXPIRED DRUG ADMINISTERED [None]
